FAERS Safety Report 12640773 (Version 1)
Quarter: 2016Q3

REPORT INFORMATION
  Report Type: Report from Study
  Country: GB (occurrence: GB)
  Receive Date: 20160810
  Receipt Date: 20160810
  Transmission Date: 20161109
  Serious: Yes (Death, Other)
  Sender: FDA-Public Use
  Company Number: GB-ASTELLAS-2010002118

PATIENT
  Age: 65 Year
  Sex: Female

DRUGS (5)
  1. EPILIM [Concomitant]
     Active Substance: VALPROATE SODIUM
     Indication: SEIZURE
     Route: 048
     Dates: start: 201003, end: 20100516
  2. PLACEBO [Suspect]
     Active Substance: UNSPECIFIED INGREDIENT
     Indication: NON-SMALL CELL LUNG CANCER
     Dosage: UNK, ONCE DAILY
     Route: 048
     Dates: start: 20100505, end: 20100516
  3. PLACEBO [Suspect]
     Active Substance: UNSPECIFIED INGREDIENT
     Indication: METASTASES TO CENTRAL NERVOUS SYSTEM
  4. DEXAMETHASONE. [Concomitant]
     Active Substance: DEXAMETHASONE
     Indication: BRAIN OEDEMA
     Route: 048
     Dates: start: 201003, end: 20100516
  5. LANSOPRAZOLE. [Concomitant]
     Active Substance: LANSOPRAZOLE
     Indication: PROPHYLAXIS AGAINST GASTROINTESTINAL ULCER
     Route: 048
     Dates: start: 201003, end: 20100516

REACTIONS (2)
  - Pneumonia [Fatal]
  - Lung cancer metastatic [Fatal]

NARRATIVE: CASE EVENT DATE: 20100516
